FAERS Safety Report 25645046 (Version 1)
Quarter: 2025Q3

REPORT INFORMATION
  Report Type: Other
  Country: GB (occurrence: GB)
  Receive Date: 20250805
  Receipt Date: 20250805
  Transmission Date: 20251021
  Serious: Yes (Hospitalization, Other)
  Sender: MACLEODS
  Company Number: None

PATIENT

DRUGS (43)
  1. PANTOPRAZOLE [Suspect]
     Active Substance: PANTOPRAZOLE
     Indication: Product used for unknown indication
     Route: 065
     Dates: start: 20250429
  2. Sulfur + Hydrocortisone [Concomitant]
     Indication: Product used for unknown indication
     Route: 065
  3. SALICYLIC ACID [Concomitant]
     Active Substance: SALICYLIC ACID
     Indication: Product used for unknown indication
     Route: 065
  4. AMOXICILLIN [Concomitant]
     Active Substance: AMOXICILLIN
     Indication: Product used for unknown indication
     Dosage: 500 MG CAPSULES ONE TO BE TAKEN THREE TIMES A DAY 15 CAPSULE- COURSE COMPLETED
     Route: 065
     Dates: start: 20250228
  5. PACLITAXEL [Concomitant]
     Active Substance: PACLITAXEL
     Route: 065
  6. DIAZEPAM [Concomitant]
     Active Substance: DIAZEPAM
     Indication: Product used for unknown indication
     Dosage: 2 MG TABLETS TAKE ONE TABLET THREE TIMES A DAY WHEN NECESSARY FOR 3 DAYS
     Route: 065
     Dates: start: 20250320
  7. Paracetamol  + Domperidone [Concomitant]
     Indication: Palliative care
     Route: 065
  8. Menthol + Hydrocortisone [Concomitant]
     Indication: Product used for unknown indication
     Route: 065
  9. Ichthammol + Clioquinol + Hydrocortisone [Concomitant]
     Indication: Product used for unknown indication
     Route: 065
  10. Coal tar + Salicylic acid + Hydrocortisone [Concomitant]
     Indication: Product used for unknown indication
     Route: 065
  11. Calcipotriol + Betamethasone [Concomitant]
     Indication: Product used for unknown indication
     Route: 065
  12. Lidocaine + Hydrocortisone [Concomitant]
     Indication: Product used for unknown indication
     Route: 065
  13. Clindamycin + Hydrocortisone [Concomitant]
     Indication: Product used for unknown indication
     Route: 065
  14. Cinchocaine + Hydrocortisone [Concomitant]
     Indication: Product used for unknown indication
     Route: 065
  15. Cascara + Senna [Concomitant]
     Indication: Product used for unknown indication
     Route: 065
  16. SENNA [Concomitant]
     Active Substance: SENNOSIDES
     Indication: Product used for unknown indication
     Dosage: 7.5 MG TABLETS TWO TO BE TAKEN AT NIGHT
     Route: 065
     Dates: start: 20250206
  17. Cosmocol lemon and lime flavour oral powder [Concomitant]
     Indication: Constipation
     Dosage: ORAL POWDER SACHETS TAKE ONE TWICE A DAY IN THE MORNING AND NIGHT
     Route: 048
     Dates: start: 20250326
  18. ZOPICLONE [Concomitant]
     Active Substance: ZOPICLONE
     Indication: Product used for unknown indication
     Route: 065
  19. PROCHLORPERAZINE [Concomitant]
     Active Substance: PROCHLORPERAZINE
     Indication: Product used for unknown indication
     Dosage: 5 MG TABLETS ONE TO BE TAKEN THREE TIMES A DAY
     Route: 065
     Dates: start: 20250417
  20. OMEPRAZOLE [Concomitant]
     Active Substance: OMEPRAZOLE
     Indication: Oesophagitis
     Dosage: 20 MG CAPSULES ONE TO BE TAKEN EACH DAY IN THE MORNING- INCREASED TO 40MG  ONCE A DAY
     Route: 065
  21. LOPERAMIDE [Concomitant]
     Active Substance: LOPERAMIDE
     Route: 065
  22. Adcal-D3 chewable tablets tutti frutti [Concomitant]
     Indication: Product used for unknown indication
     Dosage: 1 CHEWABLE TABLETS PER DAY, PREFERABLY ONE TABLET EACH MORNING AND EVENING
     Route: 048
     Dates: start: 20250514
  23. HYDROCORTISONE [Concomitant]
     Active Substance: HYDROCORTISONE
     Indication: Product used for unknown indication
     Route: 065
  24. PREGABALIN [Concomitant]
     Active Substance: PREGABALIN
     Indication: Product used for unknown indication
     Dosage: 100 MG CAPSULES ONE TO BE TAKEN TWICE A DAY
     Route: 065
  25. DOMPERIDONE [Concomitant]
     Active Substance: DOMPERIDONE
     Indication: Product used for unknown indication
     Dosage: 10 MG TABLETS ONE TO BE TAKEN UP TO THREE TIMES A DAY
     Route: 065
     Dates: start: 20250416
  26. OXYCODONE [Concomitant]
     Active Substance: OXYCODONE
     Indication: Product used for unknown indication
     Route: 065
     Dates: start: 20250320
  27. OXYCODONE [Concomitant]
     Active Substance: OXYCODONE
     Route: 065
  28. MORPHINE [Concomitant]
     Active Substance: MORPHINE
     Indication: Pain
     Route: 065
     Dates: start: 20250313
  29. LORAZEPAM [Concomitant]
     Active Substance: LORAZEPAM
     Indication: Product used for unknown indication
     Dosage: 1 MG TAB TAKE ONE AT 10 PM AT NIGHT. CAN ALSO TAKE HALF A TAB UP TO FOUR TIMES A DAY WHEN NEEDED
     Route: 065
  30. DENOSUMAB [Concomitant]
     Active Substance: DENOSUMAB
     Route: 042
     Dates: start: 20250514
  31. DENOSUMAB [Concomitant]
     Active Substance: DENOSUMAB
     Route: 058
     Dates: start: 20250514
  32. Oilatum Plus bath additive [Concomitant]
     Indication: Product used for unknown indication
     Route: 065
  33. BETAMETHASONE VALERATE [Concomitant]
     Active Substance: BETAMETHASONE VALERATE
     Indication: Product used for unknown indication
     Route: 065
  34. AVEENO [Concomitant]
     Active Substance: DIMETHICONE\HOMOSALATE\OCTINOXATE\OCTISALATE\TITANIUM DIOXIDE
     Indication: Product used for unknown indication
     Dosage: APPLY FOUR TIMES A DAY
     Route: 065
     Dates: start: 20250305
  35. Oxytetracycline + Hydrocortisone [Concomitant]
     Indication: Product used for unknown indication
     Route: 065
  36. Econazole + Hydrocortisone [Concomitant]
     Indication: Product used for unknown indication
     Route: 065
  37. Simeticone + Loperamide [Concomitant]
     Indication: Product used for unknown indication
     Route: 065
  38. CELECOXIB [Concomitant]
     Active Substance: CELECOXIB
     Indication: Product used for unknown indication
     Route: 065
     Dates: start: 20250423
  39. Ichthammol + Hydrocortisone [Concomitant]
     Indication: Product used for unknown indication
     Route: 065
  40. CYCLIZINE [Concomitant]
     Active Substance: CYCLIZINE
     Indication: Product used for unknown indication
     Route: 065
  41. OXYCODONE HYDROCHLORIDE [Concomitant]
     Active Substance: OXYCODONE HYDROCHLORIDE
     Indication: Product used for unknown indication
     Dosage: 20 MG MODIFIED-RELEASE TABLETS ONE TO BE TAKEN EVERY 12 HOURS, 56 TABLET- DOSE INCREASED
     Route: 065
     Dates: start: 20250327
  42. OXYCODONE HYDROCHLORIDE [Concomitant]
     Active Substance: OXYCODONE HYDROCHLORIDE
     Dosage: ONE TO BE TAKEN EVERY 12 HOURS
     Route: 065
  43. DOCUSATE [Concomitant]
     Active Substance: DOCUSATE
     Indication: Product used for unknown indication
     Dosage: 100 MG CAPSULES TWO TO BE TAKEN TWICE DAILY MORNING AND NIGHT
     Route: 065

REACTIONS (2)
  - Swelling face [Unknown]
  - Erythema [Unknown]
